FAERS Safety Report 7576205-8 (Version None)
Quarter: 2011Q2

REPORT INFORMATION
  Report Type: 
  Country: None (occurrence: None)
  Receive Date: 20110628
  Receipt Date: 20110613
  Transmission Date: 20111010
  Serious: Yes (Other)
  Sender: FDA-Public Use
  Company Number: US-BAYER-2011-051069

PATIENT

DRUGS (1)
  1. MAGNEVIST [Suspect]
     Indication: SCAN BRAIN
     Dosage: UNK
     Dates: start: 20110516, end: 20110516

REACTIONS (2)
  - INJECTION SITE THROMBOSIS [None]
  - PHLEBITIS [None]
